FAERS Safety Report 18018883 (Version 1)
Quarter: 2020Q3

REPORT INFORMATION
  Report Type: Spontaneous
  Country: US (occurrence: US)
  Receive Date: 20200713
  Receipt Date: 20200713
  Transmission Date: 20201103
  Serious: Yes (Death)
  Sender: FDA-Public Use
  Company Number: None

PATIENT
  Age: 67 Year
  Sex: Female
  Weight: 107.3 kg

DRUGS (2)
  1. IMATINIB (GENERIC) [Suspect]
     Active Substance: IMATINIB MESYLATE
     Indication: C-KIT GENE MUTATION
     Route: 048
     Dates: start: 20200407, end: 20200624
  2. IMATINIB (GENERIC) [Suspect]
     Active Substance: IMATINIB MESYLATE
     Indication: MALIGNANT MELANOMA
     Route: 048
     Dates: start: 20200407, end: 20200624

REACTIONS (2)
  - Hepatic enzyme increased [None]
  - Jaundice [None]

NARRATIVE: CASE EVENT DATE: 20200624
